FAERS Safety Report 6163419-7 (Version None)
Quarter: 2009Q2

REPORT INFORMATION
  Report Type: 
  Country: None (occurrence: None)
  Receive Date: 20090422
  Receipt Date: 20090414
  Transmission Date: 20091009
  Serious: Yes (Hospitalization, Other)
  Sender: FDA-Public Use
  Company Number: PHHY2009GB09395

PATIENT
  Sex: Male

DRUGS (5)
  1. CLOZARIL [Suspect]
     Indication: SCHIZOPHRENIA
     Dosage: 300 MG, QD
     Route: 048
     Dates: start: 20060424
  2. VENLAFAXINE HCL [Concomitant]
     Dosage: 150MG DAILY
     Route: 048
  3. HYOSCINE [Concomitant]
     Dosage: UNK
  4. ZOPICLONE [Concomitant]
  5. SIMVASTATIN [Concomitant]

REACTIONS (9)
  - CATHETER PLACEMENT [None]
  - GENERAL PHYSICAL CONDITION ABNORMAL [None]
  - HAEMOGLOBIN DECREASED [None]
  - HODGKIN'S DISEASE [None]
  - INFECTION [None]
  - INFLUENZA LIKE ILLNESS [None]
  - NECK MASS [None]
  - NEOPLASM MALIGNANT [None]
  - PLATELET COUNT DECREASED [None]
